FAERS Safety Report 4776147-7 (Version None)
Quarter: 2005Q3

REPORT INFORMATION
  Report Type: 
  Country: None (occurrence: None)
  Receive Date: 20050922
  Receipt Date: 20050315
  Transmission Date: 20060218
  Serious: Yes (Hospitalization)
  Sender: FDA-Public Use
  Company Number: AU-BRISTOL-MYERS SQUIBB COMPANY-12899266

PATIENT
  Age: 56 Year
  Sex: Female
  Weight: 69 kg

DRUGS (5)
  1. CETUXIMAB [Suspect]
     Indication: COLORECTAL CANCER METASTATIC
     Dosage: LOADING DOSE 682.28 MG ON 08-MAR-2005. FOLLOWED BY WEEKLY DOSE 426.43 MG FROM 22-MAR TO 26-APR-2005.
     Route: 042
     Dates: start: 20050308, end: 20050308
  2. PARACETAMOL [Concomitant]
     Route: 048
     Dates: start: 20050308
  3. PROMETHAZINE HCL [Concomitant]
     Route: 042
     Dates: start: 20050308
  4. IBUPROFEN [Concomitant]
     Indication: PAIN
     Dates: start: 20050221
  5. FLUCONAZOLE [Concomitant]
     Dates: start: 20050201

REACTIONS (5)
  - HAEMOGLOBIN DECREASED [None]
  - HEADACHE [None]
  - HYPERSENSITIVITY [None]
  - NAUSEA [None]
  - TACHYCARDIA [None]
